FAERS Safety Report 19457686 (Version 1)
Quarter: 2021Q2

REPORT INFORMATION
  Report Type: Spontaneous
  Country: DE (occurrence: DE)
  Receive Date: 20210624
  Receipt Date: 20210624
  Transmission Date: 20210717
  Serious: Yes (Other)
  Sender: FDA-Public Use
  Company Number: DE-SHILPA MEDICARE LIMITED-SML-DE-2021-00811

PATIENT
  Age: 48 Year
  Sex: Male

DRUGS (8)
  1. DOCETAXEL, UNKNOWN [Suspect]
     Active Substance: DOCETAXEL
     Indication: NON-SMALL CELL LUNG CANCER
     Dosage: 75MG/M2 D1, Q22
     Route: 065
     Dates: start: 201907
  2. PEMETREXED. [Suspect]
     Active Substance: PEMETREXED
     Dosage: 500MG/M2 DAY 1 REPETITION DAY 22
     Dates: start: 201810, end: 201812
  3. CARBOPLATIN. [Suspect]
     Active Substance: CARBOPLATIN
     Indication: NON-SMALL CELL LUNG CANCER
     Dosage: AUC 5 DAY 1 REPETITION DAY 22
     Route: 065
     Dates: start: 201810, end: 201812
  4. PEMBROLIZUMAB. [Suspect]
     Active Substance: PEMBROLIZUMAB
     Dosage: 200MG DAY 1 REPETITION DAY 22
     Route: 065
     Dates: start: 201901, end: 201902
  5. PEMBROLIZUMAB. [Suspect]
     Active Substance: PEMBROLIZUMAB
     Indication: NON-SMALL CELL LUNG CANCER
     Dosage: 200MG DAY 1 REPETITION DAY 22
     Route: 065
     Dates: start: 201810, end: 201812
  6. PEMETREXED. [Suspect]
     Active Substance: PEMETREXED
     Indication: NON-SMALL CELL LUNG CANCER
     Dosage: 500MG/M2  DAY 1 REPETITION DAY 22
     Route: 065
     Dates: start: 201901, end: 201902
  7. DENOSUMAB [Suspect]
     Active Substance: DENOSUMAB
     Indication: NON-SMALL CELL LUNG CANCER
     Dosage: UNK UNK, EVERY 4 WEEKS
     Route: 065
     Dates: start: 201901, end: 201902
  8. DENOSUMAB [Suspect]
     Active Substance: DENOSUMAB
     Dosage: 120MG EVERY 4 WEEKS
     Route: 065
     Dates: start: 201810, end: 201812

REACTIONS (4)
  - Neutropenia [Unknown]
  - Nephritis [Unknown]
  - Malignant neoplasm progression [Unknown]
  - Influenza [Unknown]

NARRATIVE: CASE EVENT DATE: 2019
